FAERS Safety Report 7741444-X (Version None)
Quarter: 2011Q3

REPORT INFORMATION
  Report Type: 
  Country: None (occurrence: None)
  Receive Date: 20110909
  Receipt Date: 20110825
  Transmission Date: 20111222
  Serious: Yes (Hospitalization)
  Sender: FDA-Public Use
  Company Number: US-ABBOTT-11P-163-0849524-00

PATIENT
  Sex: Female
  Weight: 55.388 kg

DRUGS (28)
  1. MYCOPHENALATE [Concomitant]
     Indication: TRANSPLANT
  2. ZITHROMYCIN [Concomitant]
     Indication: TRANSPLANT
  3. ADVAIR DISKUS 100/50 [Concomitant]
     Indication: LUNG DISORDER
  4. FUROSEMIDE [Concomitant]
     Indication: RENAL DISORDER
  5. LOSARTAN POTASSIUM [Concomitant]
     Indication: HYPERTENSION
  6. PREDNISONE [Concomitant]
     Indication: TRANSPLANT
  7. AXTREONAM [Concomitant]
     Indication: LUNG INFECTION
  8. HYPERTONIC SALINE SOLUTION [Concomitant]
     Indication: LUNG DISORDER
  9. MYCOPHENALATE [Concomitant]
     Indication: IMMUNOSUPPRESSANT DRUG THERAPY
  10. PRAVASTATIN [Concomitant]
     Indication: BLOOD CHOLESTEROL INCREASED
  11. CYCLOSPORINE [Concomitant]
     Indication: TRANSPLANT
  12. FERROUS SULFATE TAB [Concomitant]
     Indication: MINERAL SUPPLEMENTATION
  13. SERTRALINE HYDROCHLORIDE [Concomitant]
     Indication: DEPRESSION
  14. VORICONAZOLE [Concomitant]
     Indication: FUNGAL INFECTION
  15. ALENDRONATE SODIUM [Concomitant]
     Indication: OSTEOPENIA
  16. PROPRANOLOL [Concomitant]
     Indication: HYPERTENSION
  17. ASCORBIC ACID [Concomitant]
     Indication: VITAMIN SUPPLEMENTATION
  18. ALBUTEROL SULFATE AUTOHALER [Concomitant]
     Indication: LUNG DISORDER
  19. HUMALOG [Concomitant]
     Indication: DIABETES MELLITUS
  20. DILTIAZEM [Concomitant]
     Indication: HYPERTENSION
  21. MAGNESIUM OXIDE [Concomitant]
     Indication: TRANSPLANT
  22. OMEPRAZOLE [Concomitant]
     Indication: GASTROOESOPHAGEAL REFLUX DISEASE
  23. SODIUM BICARBONATE [Concomitant]
     Indication: RENAL TUBULAR ACIDOSIS
  24. CREON [Suspect]
     Indication: CYSTIC FIBROSIS
     Route: 048
  25. AQUADEK [Concomitant]
     Indication: VITAMIN SUPPLEMENTATION
  26. CALCIUM CARBONATE [Concomitant]
     Indication: MINERAL SUPPLEMENTATION
  27. FOLIC ACID [Concomitant]
     Indication: VITAMIN SUPPLEMENTATION
  28. HYDRALAZINE HCL [Concomitant]
     Indication: HYPERTENSION

REACTIONS (9)
  - LUNG INFECTION [None]
  - DRUG INEFFECTIVE [None]
  - CLOSTRIDIAL INFECTION [None]
  - WEIGHT DECREASED [None]
  - NEPHROPATHY [None]
  - GASTROINTESTINAL DISORDER [None]
  - STEATORRHOEA [None]
  - DIARRHOEA [None]
  - DYSPNOEA [None]
